FAERS Safety Report 24836302 (Version 1)
Quarter: 2025Q1

REPORT INFORMATION
  Report Type: Spontaneous
  Country: US (occurrence: US)
  Receive Date: 20250113
  Receipt Date: 20250113
  Transmission Date: 20250409
  Serious: Yes (Death, Other)
  Sender: AMGEN
  Company Number: US-AMGEN-USASP2025005111

PATIENT

DRUGS (3)
  1. PREDNISONE [Suspect]
     Active Substance: PREDNISONE
     Indication: Immunosuppressant drug therapy
     Route: 065
  2. TACROLIMUS [Concomitant]
     Active Substance: TACROLIMUS
     Indication: Immunosuppressant drug therapy
  3. MYCOPHENOLIC ACID [Concomitant]
     Active Substance: MYCOPHENOLIC ACID
     Indication: Immunosuppressant drug therapy

REACTIONS (11)
  - Bladder cancer [Fatal]
  - Lung neoplasm malignant [Fatal]
  - Skin cancer metastatic [Fatal]
  - Leukaemia [Fatal]
  - Lymphoproliferative disorder [Fatal]
  - Pneumocystis jirovecii pneumonia [Fatal]
  - Pneumonia bacterial [Fatal]
  - Bacterial sepsis [Fatal]
  - Death [Fatal]
  - Kidney transplant rejection [Unknown]
  - BK virus infection [Unknown]
